FAERS Safety Report 8257720-0 (Version None)
Quarter: 2012Q2

REPORT INFORMATION
  Report Type: 
  Country: None (occurrence: None)
  Receive Date: 20120404
  Receipt Date: 20120323
  Transmission Date: 20120825
  Serious: Yes (Other)
  Sender: FDA-Public Use
  Company Number: AR-AMGEN-ARGSP2011051916

PATIENT
  Age: 51 Year
  Sex: Male

DRUGS (4)
  1. ENALAPRIL [Concomitant]
     Dosage: 5 MG, 2X/DAY
     Route: 048
     Dates: start: 20060201
  2. ENBREL [Suspect]
     Indication: RHEUMATOID ARTHRITIS
     Dosage: 25 MG, 2X/WEEK
     Dates: start: 20110517
  3. PREDNISONE TAB [Concomitant]
     Dosage: ORALLY ALTERNATED: 8MG ONE DAY AND 4MG OTHER DAY
     Route: 048
     Dates: start: 20110501
  4. CALCIUM CARBONATE [Concomitant]
     Dosage: UNK
     Route: 048
     Dates: start: 20090101

REACTIONS (8)
  - RHEUMATOID ARTHRITIS [None]
  - OEDEMA PERIPHERAL [None]
  - DRUG INEFFECTIVE [None]
  - INFLUENZA [None]
  - PRODUCT QUALITY ISSUE [None]
  - ARTHRITIS [None]
  - FINGER DEFORMITY [None]
  - HYPOKINESIA [None]
